FAERS Safety Report 25888154 (Version 6)
Quarter: 2025Q4

REPORT INFORMATION
  Report Type: Report from Study
  Country: CA (occurrence: CA)
  Receive Date: 20251007
  Receipt Date: 20251110
  Transmission Date: 20260118
  Serious: Yes (Hospitalization)
  Sender: JOHNSON AND JOHNSON
  Company Number: CA-JNJFOC-20251005174

PATIENT
  Age: 78 Year
  Sex: Male
  Weight: 66 kg

DRUGS (12)
  1. REMICADE [Suspect]
     Active Substance: INFLIXIMAB
     Indication: Crohn^s disease
     Route: 041
     Dates: start: 20150414
  2. REMICADE [Suspect]
     Active Substance: INFLIXIMAB
     Route: 041
     Dates: start: 20140317
  3. REMICADE [Suspect]
     Active Substance: INFLIXIMAB
     Route: 041
     Dates: start: 20140313
  4. REMICADE [Suspect]
     Active Substance: INFLIXIMAB
     Route: 041
     Dates: start: 20251030
  5. ASPIRIN [Concomitant]
     Active Substance: ASPIRIN
     Indication: Product used for unknown indication
  6. PREVACID [Concomitant]
     Active Substance: LANSOPRAZOLE
     Indication: Product used for unknown indication
  7. RAMIPRIL [Concomitant]
     Active Substance: RAMIPRIL
     Indication: Product used for unknown indication
  8. HYDROMORPHONE [Concomitant]
     Active Substance: HYDROMORPHONE
     Indication: Product used for unknown indication
  9. COLESEVELAM [Concomitant]
     Active Substance: COLESEVELAM
     Indication: Product used for unknown indication
  10. FENOFIBRATE [Concomitant]
     Active Substance: FENOFIBRATE
     Indication: Product used for unknown indication
  11. ALTACE [Concomitant]
     Active Substance: RAMIPRIL
     Indication: Product used for unknown indication
  12. ERGOCALCIFEROL [Concomitant]
     Active Substance: ERGOCALCIFEROL
     Indication: Product used for unknown indication

REACTIONS (4)
  - Intestinal obstruction [Not Recovered/Not Resolved]
  - Plasma cell myeloma [Unknown]
  - Bone lesion [Not Recovered/Not Resolved]
  - Blood magnesium decreased [Unknown]

NARRATIVE: CASE EVENT DATE: 20250101
